FAERS Safety Report 21740934 (Version 1)
Quarter: 2022Q4

REPORT INFORMATION
  Report Type: Spontaneous
  Country: HR (occurrence: HR)
  Receive Date: 20221216
  Receipt Date: 20221216
  Transmission Date: 20230113
  Serious: Yes (Other)
  Sender: FDA-Public Use
  Company Number: HR-JNJFOC-20221223582

PATIENT
  Sex: Male

DRUGS (3)
  1. NIVOLUMAB [Suspect]
     Active Substance: NIVOLUMAB
     Indication: Product used for unknown indication
  2. REMICADE [Suspect]
     Active Substance: INFLIXIMAB
     Indication: Product used for unknown indication
     Route: 042
  3. KEYTRUDA [Suspect]
     Active Substance: PEMBROLIZUMAB
     Indication: Adenocarcinoma
     Route: 042
     Dates: start: 202110

REACTIONS (8)
  - Bronchiolitis [Unknown]
  - Intestinal perforation [Unknown]
  - Pericarditis [Unknown]
  - Pleural effusion [Unknown]
  - Pneumonitis [Unknown]
  - Lymphadenopathy [Unknown]
  - Pulmonary alveolar haemorrhage [Unknown]
  - Pulmonary cavitation [Unknown]
